FAERS Safety Report 10499052 (Version 1)
Quarter: 2014Q4

REPORT INFORMATION
  Report Type: Spontaneous
  Country: US (occurrence: US)
  Receive Date: 20141006
  Receipt Date: 20141006
  Transmission Date: 20150528
  Serious: No
  Sender: FDA-Public Use
  Company Number: US-AMGEN INC.-USASP2013074485

PATIENT
  Sex: Female

DRUGS (2)
  1. MS CONTIN [Concomitant]
     Active Substance: MORPHINE SULFATE
     Indication: CANCER PAIN
     Dosage: 15 MG, QD
  2. XGEVA [Suspect]
     Active Substance: DENOSUMAB
     Indication: METASTASES TO BONE
     Dosage: UNK UNK, QMO
     Route: 065
     Dates: start: 2012

REACTIONS (3)
  - Restlessness [Unknown]
  - Bone pain [Unknown]
  - Tooth loss [Unknown]

NARRATIVE: CASE EVENT DATE: 2012
